FAERS Safety Report 7607408-1 (Version None)
Quarter: 2011Q3

REPORT INFORMATION
  Report Type: 
  Country: None (occurrence: None)
  Receive Date: 20110713
  Receipt Date: 20110707
  Transmission Date: 20111222
  Serious: Yes (Hospitalization)
  Sender: FDA-Public Use
  Company Number: GXBR2011US03029

PATIENT
  Sex: Male

DRUGS (14)
  1. MULTAQ [Suspect]
     Dosage: 400 MG, UNK
     Route: 048
  2. SPIRIVA [Suspect]
     Indication: CHRONIC OBSTRUCTIVE PULMONARY DISEASE
     Dosage: 36 UG, QD
     Dates: start: 20100916
  3. VITAMIN D [Concomitant]
     Dosage: UNK DF, UNK
  4. COUMADIN [Concomitant]
     Dosage: UNK MG, UNK
  5. SYNTHROID [Concomitant]
     Dosage: UNK UG, UNK
  6. ARICEPT [Concomitant]
     Dosage: UNK MG, UNK
  7. LEXAPRO [Concomitant]
     Dosage: UNK MG, UNK
  8. WELCHOL [Concomitant]
     Dosage: UNK DF, UNK
  9. NEXIUM [Concomitant]
     Dosage: UNK MG, UNK
  10. METOPROLOL TARTRATE [Suspect]
     Dosage: 50 MG, QD
  11. NOVOLOG [Concomitant]
     Dosage: UNK DF, UNK
  12. CRESTOR [Concomitant]
     Dosage: UNK MG, UNK
  13. PLAVIX [Concomitant]
     Dosage: UNK MG, UNK
  14. ULTRAM [Concomitant]
     Dosage: UNK MG, UNK

REACTIONS (4)
  - BRADYCARDIA [None]
  - LUNG DISORDER [None]
  - OXYGEN SATURATION DECREASED [None]
  - ATRIAL FIBRILLATION [None]
